FAERS Safety Report 5449147-1 (Version None)
Quarter: 2007Q3

REPORT INFORMATION
  Report Type: 
  Country: None (occurrence: None)
  Receive Date: 20070911
  Receipt Date: 20070910
  Transmission Date: 20080115
  Serious: Yes (Other)
  Sender: FDA-Public Use
  Company Number: GB-ROXANE LABORATORIES, INC-2007-DE-05362GD

PATIENT

DRUGS (1)
  1. MORPHINE [Suspect]
     Route: 048

REACTIONS (1)
  - ACCIDENTAL EXPOSURE [None]
